FAERS Safety Report 4304270-X (Version None)
Quarter: 2004Q1

REPORT INFORMATION
  Report Type: 
  Country: None (occurrence: None)
  Receive Date: 20040224
  Receipt Date: 20040218
  Transmission Date: 20041129
  Serious: Yes (Life-Threatening, Hospitalization)
  Sender: FDA-Public Use
  Company Number: 2004UW01504

PATIENT
  Age: 47 Year
  Sex: Female
  Weight: 98.8842 kg

DRUGS (7)
  1. TAMOXIFEN [Suspect]
     Indication: BREAST CANCER
     Dosage: 20 MG BID PO
     Route: 048
     Dates: start: 20011119, end: 20040101
  2. ASPIRIN [Concomitant]
  3. ATENOLOL [Concomitant]
  4. CAPTOPRIL [Concomitant]
  5. PAXIL [Concomitant]
  6. SIMVASTATIN [Concomitant]
  7. LOVENOX [Concomitant]

REACTIONS (9)
  - BLOOD HOMOCYSTEINE INCREASED [None]
  - CORONARY ARTERY DISEASE [None]
  - DILATATION ATRIAL [None]
  - INTRACARDIAC THROMBUS [None]
  - MASS [None]
  - MYOCARDIAL INFARCTION [None]
  - PLEURISY [None]
  - PULMONARY EMBOLISM [None]
  - PULMONARY INFARCTION [None]
